FAERS Safety Report 21308019 (Version 1)
Quarter: 2022Q3

REPORT INFORMATION
  Report Type: Spontaneous
  Country: US (occurrence: None)
  Receive Date: 20220907
  Receipt Date: 20220907
  Transmission Date: 20221027
  Serious: No
  Sender: FDA-Public Use
  Company Number: None

PATIENT
  Age: 82 Year
  Sex: Female
  Weight: 55.125 kg

DRUGS (1)
  1. ASMANEX [Suspect]
     Active Substance: MOMETASONE FUROATE
     Indication: Asthma
     Dosage: OTHER QUANTITY : 1 PUFF(S);?FREQUENCY : AT BEDTIME;?
     Route: 055
     Dates: start: 20190806, end: 20220905

REACTIONS (3)
  - Cough [None]
  - Retching [None]
  - Product physical issue [None]

NARRATIVE: CASE EVENT DATE: 20220905
